FAERS Safety Report 11718846 (Version 3)
Quarter: 2016Q1

REPORT INFORMATION
  Report Type: Report from Study
  Country: AU (occurrence: AU)
  Receive Date: 20151110
  Receipt Date: 20160301
  Transmission Date: 20160525
  Serious: Yes (Hospitalization)
  Sender: FDA-Public Use
  Company Number: AU-SA-2015SA175716

PATIENT
  Age: 43 Year
  Sex: Female
  Weight: 65.8 kg

DRUGS (10)
  1. CALCIUM MAGNESIUM D3 [Concomitant]
     Indication: PROPHYLAXIS
     Route: 048
     Dates: start: 201208
  2. VITAMIN C [Concomitant]
     Active Substance: ASCORBIC ACID
     Indication: PROPHYLAXIS
     Route: 048
     Dates: start: 20140811
  3. INNER HEALTH PLUS DAIRY FREE [Concomitant]
     Indication: PROPHYLAXIS
     Route: 048
     Dates: start: 20140409
  4. ALEMTUZUMAB [Suspect]
     Active Substance: ALEMTUZUMAB
     Indication: MULTIPLE SCLEROSIS
     Dosage: INTENDED DOSE: 36 MG
     Route: 065
     Dates: start: 20100301, end: 20100303
  5. BISACODYL. [Concomitant]
     Active Substance: BISACODYL
     Indication: DRUG THERAPY
     Route: 054
     Dates: start: 20090810
  6. ALEMTUZUMAB [Suspect]
     Active Substance: ALEMTUZUMAB
     Indication: MULTIPLE SCLEROSIS
     Dosage: INTENDED DOSE:60 MG
     Route: 065
     Dates: start: 20090302, end: 20090306
  7. ALEMTUZUMAB [Suspect]
     Active Substance: ALEMTUZUMAB
     Indication: MULTIPLE SCLEROSIS
     Dosage: INTENDED DOSE: 36 MG
     Route: 065
     Dates: start: 20110823, end: 20110825
  8. CITALOPRAM [Concomitant]
     Active Substance: CITALOPRAM HYDROBROMIDE
     Indication: DRUG THERAPY
     Route: 048
     Dates: start: 20110429
  9. BACLOFEN. [Concomitant]
     Active Substance: BACLOFEN
     Indication: DRUG THERAPY
     Route: 048
     Dates: start: 20151014
  10. VESICARE [Concomitant]
     Active Substance: SOLIFENACIN SUCCINATE
     Indication: DRUG THERAPY
     Route: 048
     Dates: start: 20140131

REACTIONS (1)
  - Urosepsis [Not Recovered/Not Resolved]

NARRATIVE: CASE EVENT DATE: 20151027
